FAERS Safety Report 18399360 (Version 1)
Quarter: 2020Q4

REPORT INFORMATION
  Report Type: Spontaneous
  Country: AU (occurrence: AU)
  Receive Date: 20201019
  Receipt Date: 20201019
  Transmission Date: 20210114
  Serious: Yes (Other)
  Sender: FDA-Public Use
  Company Number: AU-PFIZER INC-2020395821

PATIENT
  Age: 24 Year
  Sex: Female

DRUGS (1)
  1. MEPERIDINE HCL [Suspect]
     Active Substance: MEPERIDINE HYDROCHLORIDE
     Indication: POSTOPERATIVE ANALGESIA
     Dosage: 50 MG (IN SALINE 10 ML)
     Route: 037

REACTIONS (7)
  - Loss of consciousness [Recovering/Resolving]
  - Vomiting [Recovering/Resolving]
  - Nausea [Recovering/Resolving]
  - Somnolence [Unknown]
  - Respiratory depression [Recovering/Resolving]
  - Dyspnoea [Recovering/Resolving]
  - Incorrect route of product administration [Unknown]
